FAERS Safety Report 9305475 (Version 1)
Quarter: 2013Q2

REPORT INFORMATION
  Report Type: Spontaneous
  Country: GR (occurrence: GR)
  Receive Date: 20130523
  Receipt Date: 20130523
  Transmission Date: 20140414
  Serious: Yes (Other)
  Sender: FDA-Public Use
  Company Number: GR-UCBSA-086102

PATIENT
  Sex: Male

DRUGS (2)
  1. VIMPAT [Suspect]
     Indication: PARTIAL SEIZURES
  2. DEPAKINE [Concomitant]
     Indication: PARTIAL SEIZURES
     Route: 048

REACTIONS (2)
  - Akinesia [Recovered/Resolved]
  - Drug ineffective [Recovered/Resolved]
